FAERS Safety Report 6006308-0 (Version None)
Quarter: 2008Q4

REPORT INFORMATION
  Report Type: 
  Country: None (occurrence: None)
  Receive Date: 20081215
  Receipt Date: 20081128
  Transmission Date: 20090506
  Serious: Yes (Hospitalization)
  Sender: FDA-Public Use
  Company Number: 8036455

PATIENT
  Age: 84 Year
  Sex: Female

DRUGS (4)
  1. KEPPRA [Suspect]
     Indication: EPILEPSY
     Dosage: 500 MG 4/D PO
     Route: 048
     Dates: start: 20080501, end: 20080701
  2. CONCOR  /00802602/ [Suspect]
     Indication: HYPERTENSION
     Dosage: 5 MG 1/D PO
     Route: 048
  3. PANTOZOL /01263202/ [Suspect]
     Indication: DYSPEPSIA
     Dosage: 40 MG 1/D PO
     Route: 048
  4. ASPIRIN [Suspect]
     Indication: CEREBROVASCULAR ACCIDENT
     Dosage: 100 MG 1/D PO
     Route: 048

REACTIONS (2)
  - EOSINOPHIL COUNT DECREASED [None]
  - PRURITUS [None]
